FAERS Safety Report 12709569 (Version 1)
Quarter: 2016Q3

REPORT INFORMATION
  Report Type: Spontaneous
  Country: US (occurrence: None)
  Receive Date: 20160901
  Receipt Date: 20160901
  Transmission Date: 20161109
  Serious: Yes (Hospitalization)
  Sender: FDA-Public Use
  Company Number: None

PATIENT
  Age: 61 Year
  Sex: Male
  Weight: 75.3 kg

DRUGS (3)
  1. LEVETIRACETAM. [Concomitant]
     Active Substance: LEVETIRACETAM
  2. PHENYTOIN. [Suspect]
     Active Substance: PHENYTOIN
     Indication: EPILEPSY
     Dosage: GT
     Dates: start: 20160512, end: 20160730
  3. LACOSAMIDE. [Concomitant]
     Active Substance: LACOSAMIDE

REACTIONS (5)
  - Flushing [None]
  - Restlessness [None]
  - Toxicity to various agents [None]
  - Tachycardia [None]
  - Dyskinesia [None]

NARRATIVE: CASE EVENT DATE: 20160801
